FAERS Safety Report 5176584-5 (Version None)
Quarter: 2006Q4

REPORT INFORMATION
  Report Type: 
  Country: None (occurrence: None)
  Receive Date: 20061215
  Receipt Date: 20061211
  Transmission Date: 20070319
  Serious: Yes (Hospitalization, Other)
  Sender: FDA-Public Use
  Company Number: DE-BOEHRINGER INGELHEIM PHARMACEUTICALS, INC.-2006-DE-06624DE

PATIENT
  Sex: Female

DRUGS (3)
  1. AGGRENOX [Suspect]
     Indication: CEREBROVASCULAR ACCIDENT
  2. ASPIRIN [Concomitant]
     Indication: CEREBROVASCULAR ACCIDENT
  3. DIABETES MEDICATION [Concomitant]
     Indication: DIABETES MELLITUS

REACTIONS (2)
  - CEREBRAL INFARCTION [None]
  - DRUG INEFFECTIVE [None]
